FAERS Safety Report 9626350 (Version 1)
Quarter: 2013Q4

REPORT INFORMATION
  Report Type: Spontaneous
  Country: IT (occurrence: IT)
  Receive Date: 20131016
  Receipt Date: 20131016
  Transmission Date: 20140711
  Serious: Yes (Other)
  Sender: FDA-Public Use
  Company Number: IT-TEVA-436334ISR

PATIENT
  Age: 63 Year
  Sex: Female
  Weight: 48 kg

DRUGS (3)
  1. OXALIPLATINO TEVA [Suspect]
     Indication: RECTAL CANCER
     Dosage: 120MG, CYCLICAL
     Route: 042
     Dates: start: 20130912, end: 20130926
  2. ALOXI [Concomitant]
     Indication: SUPPORTIVE CARE
     Dosage: 250 MICROGRAM DAILY;
     Route: 042
     Dates: start: 20130912, end: 20130926
  3. DESAMETASONE FOSFATO HOSPIRA [Concomitant]
     Indication: SUPPORTIVE CARE
     Dosage: 8 MILLIGRAM DAILY;
     Route: 042
     Dates: start: 20130912, end: 20130926

REACTIONS (4)
  - Laryngospasm [Recovered/Resolved]
  - Abdominal pain upper [Recovered/Resolved]
  - Malaise [Recovered/Resolved]
  - Dyspnoea [Recovered/Resolved]
